FAERS Safety Report 15099366 (Version 1)
Quarter: 2018Q3

REPORT INFORMATION
  Report Type: Spontaneous
  Country: US (occurrence: US)
  Receive Date: 20180702
  Receipt Date: 20180702
  Transmission Date: 20181010
  Serious: Yes (Death, Life-Threatening, Hospitalization, Other)
  Sender: FDA-Public Use
  Company Number: US-FRESENIUS KABI-FK201807328

PATIENT
  Age: 28 Year
  Sex: Male

DRUGS (5)
  1. HYDROXYUREA. [Concomitant]
     Active Substance: HYDROXYUREA
     Indication: PRODUCT USED FOR UNKNOWN INDICATION
     Route: 065
  2. DEFERIPRONE [Concomitant]
     Active Substance: DEFERIPRONE
     Indication: IRON OVERLOAD
     Dosage: UNKNOWN
     Route: 048
  3. DEFERIPRONE [Concomitant]
     Active Substance: DEFERIPRONE
     Indication: LIVER DISORDER
  4. DEFEROXAMINE MESYLATE (MANUFACTURER UNKNOWN) [Suspect]
     Active Substance: DEFEROXAMINE MESYLATE
     Indication: IRON OVERLOAD
     Dosage: UNKNOWN
  5. DEFEROXAMINE MESYLATE (MANUFACTURER UNKNOWN) [Suspect]
     Active Substance: DEFEROXAMINE MESYLATE
     Indication: LIVER DISORDER

REACTIONS (4)
  - Multi-organ disorder [Fatal]
  - Septic shock [Unknown]
  - Respiratory failure [Unknown]
  - Vibrio vulnificus infection [Unknown]
